FAERS Safety Report 4875680-7 (Version None)
Quarter: 2006Q1

REPORT INFORMATION
  Report Type: 
  Country: None (occurrence: None)
  Receive Date: 20060109
  Receipt Date: 20051229
  Transmission Date: 20060701
  Serious: Yes (Other)
  Sender: FDA-Public Use
  Company Number: DE-JNJFOC-20050606891

PATIENT
  Age: 50 Year
  Sex: Female

DRUGS (9)
  1. RISPERDAL CONSTA [Suspect]
     Route: 030
  2. RISPERDAL CONSTA [Suspect]
     Route: 030
  3. DIPIPERON [Suspect]
     Dosage: TAKEN AT 18.00HRS
     Route: 048
  4. DIPIPERON [Suspect]
     Route: 048
  5. DIPIPERON [Suspect]
     Route: 048
  6. LAUBEEL [Interacting]
     Route: 048
  7. LAUBEEL [Interacting]
     Route: 048
  8. LAUBEEL [Interacting]
     Route: 048
  9. OLANZAPINE [Suspect]
     Route: 048

REACTIONS (3)
  - CIRCULATORY COLLAPSE [None]
  - DRUG INTERACTION [None]
  - HEART RATE INCREASED [None]
